FAERS Safety Report 10676906 (Version 2)
Quarter: 2015Q2

REPORT INFORMATION
  Report Type: Spontaneous
  Country: US (occurrence: US)
  Receive Date: 20141226
  Receipt Date: 20150407
  Transmission Date: 20150821
  Serious: Yes (Hospitalization, Other)
  Sender: FDA-Public Use
  Company Number: US-GLAXOSMITHKLINE-US2014GSK039531

PATIENT
  Age: 56 Year
  Sex: Female

DRUGS (5)
  1. VOTRIENT [Suspect]
     Active Substance: PAZOPANIB HYDROCHLORIDE
     Indication: RENAL CANCER
     Dosage: 800 MG, QD
     Route: 048
     Dates: start: 20141031, end: 20141215
  2. LISINOPRIL. [Concomitant]
     Active Substance: LISINOPRIL
  3. ENOXAPARIN [Concomitant]
     Active Substance: ENOXAPARIN
  4. LORATADINE. [Concomitant]
     Active Substance: LORATADINE
  5. METFORMIN [Concomitant]
     Active Substance: METFORMIN HYDROCHLORIDE

REACTIONS (3)
  - Gastric ulcer [Unknown]
  - Haematochezia [Recovering/Resolving]
  - Intra-abdominal haemorrhage [Recovering/Resolving]

NARRATIVE: CASE EVENT DATE: 20141215
